FAERS Safety Report 15564969 (Version 1)
Quarter: 2018Q4

REPORT INFORMATION
  Report Type: Spontaneous
  Country: IN (occurrence: IN)
  Receive Date: 20181030
  Receipt Date: 20181030
  Transmission Date: 20190205
  Serious: Yes (Other)
  Sender: FDA-Public Use
  Company Number: IN-ZYDUS-029316

PATIENT
  Age: 29 Year
  Sex: Male

DRUGS (3)
  1. MYCOPHENOLIC ACID. [Suspect]
     Active Substance: MYCOPHENOLIC ACID
     Indication: IMMUNOSUPPRESSANT DRUG THERAPY
     Route: 048
  2. INSULIN [Concomitant]
     Active Substance: INSULIN NOS
     Indication: PRODUCT USED FOR UNKNOWN INDICATION
     Route: 065
  3. CICLOSPORIN [Suspect]
     Active Substance: CYCLOSPORINE
     Indication: IMMUNOSUPPRESSANT DRUG THERAPY
     Route: 065

REACTIONS (7)
  - Polycythaemia [Recovered/Resolved]
  - Cystoid macular oedema [Recovered/Resolved]
  - Maculopathy [Recovered/Resolved]
  - Vision blurred [Recovered/Resolved]
  - Retinal haemorrhage [Recovered/Resolved]
  - Retinal disorder [Recovered/Resolved]
  - Retinopathy hyperviscosity [Recovered/Resolved]
